FAERS Safety Report 6031372-2 (Version None)
Quarter: 2009Q1

REPORT INFORMATION
  Report Type: 
  Country: None (occurrence: None)
  Receive Date: 20090108
  Receipt Date: 20090106
  Transmission Date: 20090719
  Serious: Yes (Death, Hospitalization)
  Sender: FDA-Public Use
  Company Number: PHHY2009CA00575

PATIENT
  Sex: Male

DRUGS (2)
  1. EXJADE [Suspect]
     Indication: IRON OVERLOAD
     Dosage: 1250 MG, UNK
     Route: 048
     Dates: start: 20071201
  2. EXJADE [Suspect]
     Indication: MYELOFIBROSIS

REACTIONS (6)
  - ACUTE MYELOID LEUKAEMIA [None]
  - ASTHENIA [None]
  - BACK PAIN [None]
  - BLAST CELL COUNT INCREASED [None]
  - DISEASE PROGRESSION [None]
  - THROMBOCYTHAEMIA [None]
